FAERS Safety Report 5973691-1 (Version None)
Quarter: 2008Q4

REPORT INFORMATION
  Report Type: 
  Country: None (occurrence: None)
  Receive Date: 20081201
  Receipt Date: 20081125
  Transmission Date: 20090506
  Serious: Yes (Hospitalization)
  Sender: FDA-Public Use
  Company Number: US-ROXANE LABORATORIES, INC.-2008-RO-00300RO

PATIENT
  Sex: Female

DRUGS (16)
  1. PREDNISONE TAB [Suspect]
     Indication: IMMUNOSUPPRESSANT DRUG THERAPY
     Dates: start: 20080123, end: 20080728
  2. PROGRAF [Suspect]
     Indication: IMMUNOSUPPRESSANT DRUG THERAPY
     Dosage: 2MG
     Dates: start: 20080120
  3. ENTECAVIR [Suspect]
     Indication: HEPATITIS B
     Dosage: 1MG
     Dates: start: 20080211
  4. CELLCEPT [Concomitant]
     Indication: IMMUNOSUPPRESSANT DRUG THERAPY
     Dates: start: 20080118, end: 20080214
  5. PROTONIX [Concomitant]
     Dates: start: 20080118, end: 20080125
  6. VALCYTE [Concomitant]
     Dates: start: 20080124
  7. URSO 250 [Concomitant]
     Dates: start: 20080123
  8. NORVASC [Concomitant]
     Dates: start: 20080123, end: 20080208
  9. NYSTATIN [Concomitant]
     Dates: start: 20080119
  10. BACTRIM [Concomitant]
     Dates: start: 20080123
  11. MAGNESIUM OXIDE [Concomitant]
     Dates: start: 20080125
  12. PERCOCET [Concomitant]
     Dates: start: 20080123
  13. INSULIN [Concomitant]
     Dates: start: 20080207
  14. PEPCID [Concomitant]
     Dates: start: 20080125
  15. MULTI-VITAMIN [Concomitant]
     Dates: start: 20080122
  16. PLENDIL [Concomitant]
     Dates: start: 20080208

REACTIONS (3)
  - BILE DUCT OBSTRUCTION [None]
  - CHOLANGITIS ACUTE [None]
  - DIABETES MELLITUS [None]
